FAERS Safety Report 25983978 (Version 1)
Quarter: 2025Q4

REPORT INFORMATION
  Report Type: Spontaneous
  Country: CN (occurrence: CN)
  Receive Date: 20251031
  Receipt Date: 20251031
  Transmission Date: 20260118
  Serious: Yes (Other)
  Sender: AMGEN
  Company Number: CN-AMGEN-CHNSP2025214649

PATIENT

DRUGS (3)
  1. FILGRASTIM [Suspect]
     Active Substance: FILGRASTIM
     Indication: Acute myeloid leukaemia
     Dosage: 300 MICROGRAM, QD,  ON DAYS 0 TO 14
     Route: 058
  2. CYTARABINE [Suspect]
     Active Substance: CYTARABINE
     Indication: Acute myeloid leukaemia
     Dosage: 10 MILLIGRAM/SQ. METER, Q12H, ON DAYS 1 TO 14
     Route: 058
  3. ACLARUBICIN [Suspect]
     Active Substance: ACLARUBICIN
     Indication: Acute myeloid leukaemia
     Dosage: 20 MILLIGRAM/SQ. METER, QD, ON DAYS 1 TO 4
     Route: 040

REACTIONS (12)
  - Acute myeloid leukaemia [Unknown]
  - Liver injury [Unknown]
  - Renal injury [Unknown]
  - Leukopenia [Unknown]
  - Gastrointestinal disorder [Unknown]
  - Nausea [Unknown]
  - Vomiting [Unknown]
  - Fatigue [Unknown]
  - Constipation [Unknown]
  - Diarrhoea [Unknown]
  - Respiratory tract infection [Unknown]
  - Therapy partial responder [Unknown]
